FAERS Safety Report 4486558-5 (Version None)
Quarter: 2004Q4

REPORT INFORMATION
  Report Type: 
  Country: None (occurrence: None)
  Receive Date: 20041026
  Receipt Date: 20041026
  Transmission Date: 20050328
  Serious: No
  Sender: FDA-Public Use
  Company Number: None

PATIENT
  Age: 49 Year
  Sex: Male

DRUGS (4)
  1. GEODON [Suspect]
     Indication: BIPOLAR DISORDER
     Dosage: BID PO
     Route: 048
  2. GEODON [Suspect]
     Indication: SCHIZOPHRENIA
     Dosage: BID PO
     Route: 048
  3. QUETIAPINE 300 MG [Suspect]
     Indication: BIPOLAR DISORDER
     Dosage: 3 PO QHS
     Route: 048
  4. QUETIAPINE 300 MG [Suspect]
     Indication: SCHIZOPHRENIA
     Dosage: 3 PO QHS
     Route: 048

REACTIONS (1)
  - AKATHISIA [None]
